FAERS Safety Report 9122559 (Version 2)
Quarter: 2013Q3

REPORT INFORMATION
  Report Type: Spontaneous
  Country: FR (occurrence: FR)
  Receive Date: 20130114
  Receipt Date: 20130916
  Transmission Date: 20140515
  Serious: Yes (Other)
  Sender: FDA-Public Use
  Company Number: FR-ELI_LILLY_AND_COMPANY-FR201301000989

PATIENT
  Age: 66 Year
  Sex: Female
  Weight: 45 kg

DRUGS (5)
  1. FORSTEO [Suspect]
     Indication: OSTEOPOROSIS
     Dosage: 20 UG, QD
     Route: 058
     Dates: start: 20110819, end: 20130302
  2. FORSTEO [Suspect]
     Indication: MULTIPLE FRACTURES
  3. FRACTAL [Concomitant]
     Indication: BLOOD CHOLESTEROL INCREASED
     Dosage: 20 MG, QD
  4. ALDACTONE                          /00006201/ [Concomitant]
     Indication: HYPERTENSION
     Dosage: UNK
     Dates: start: 201208
  5. LASILIX                            /00032601/ [Concomitant]
     Indication: OEDEMA PERIPHERAL
     Dosage: 20 MG, QD
     Dates: start: 201209

REACTIONS (4)
  - Loss of consciousness [Recovered/Resolved]
  - Syncope [Recovered/Resolved]
  - Presyncope [Recovered/Resolved]
  - Fatigue [Recovered/Resolved]
